FAERS Safety Report 26139673 (Version 1)
Quarter: 2025Q4

REPORT INFORMATION
  Report Type: Spontaneous
  Country: EU (occurrence: EU)
  Receive Date: 20251210
  Receipt Date: 20251210
  Transmission Date: 20260118
  Serious: Yes (Life-Threatening, Hospitalization)
  Sender: CHEPLAPHARM
  Company Number: None

PATIENT
  Age: 20 Year
  Sex: Male

DRUGS (6)
  1. OLANZAPINE PAMOATE [Suspect]
     Active Substance: OLANZAPINE PAMOATE
     Indication: Schizophrenia
     Dosage: 300 MG EVERY 5 WEEKS
     Dates: start: 20230417, end: 20251111
  2. ABILIFY [Concomitant]
     Active Substance: ARIPIPRAZOLE
     Dosage: DAILY DOSE: 15 MILLIGRAM
     Route: 048
  3. GUAIFENESIN [Concomitant]
     Active Substance: GUAIFENESIN
     Indication: Anxiety
  4. RISPERDAL [Concomitant]
     Active Substance: RISPERIDONE
     Dosage: 1 TABLET AT NIGHT?DAILY DOSE: 1 MILLIGRAM
     Route: 048
  5. RIVOTRIL [Concomitant]
     Active Substance: CLONAZEPAM
  6. ZOLOFT [Concomitant]
     Active Substance: SERTRALINE HYDROCHLORIDE
     Dosage: DAILY DOSE: 100 MILLIGRAM
     Route: 048

REACTIONS (5)
  - Presyncope [Unknown]
  - Disorientation [Unknown]
  - Blood pressure increased [Unknown]
  - Pain in extremity [Unknown]
  - Immediate post-injection reaction [Unknown]

NARRATIVE: CASE EVENT DATE: 20251111
